FAERS Safety Report 10083651 (Version 1)
Quarter: 2014Q2

REPORT INFORMATION
  Report Type: Spontaneous
  Country: US (occurrence: US)
  Receive Date: 20140417
  Receipt Date: 20140417
  Transmission Date: 20141212
  Serious: No
  Sender: FDA-Public Use
  Company Number: US-PFIZER INC-2014103800

PATIENT
  Age: 60 Year
  Sex: Male
  Weight: 98.41 kg

DRUGS (2)
  1. TOVIAZ [Suspect]
     Indication: POLLAKIURIA
     Dosage: 8 MG, 1X/DAY
     Route: 048
     Dates: start: 201308, end: 2013
  2. RISPERDAL [Concomitant]
     Dosage: 4 MG, 1X/DAY

REACTIONS (2)
  - Intentional product misuse [Unknown]
  - Constipation [Unknown]
